FAERS Safety Report 5077677-3 (Version None)
Quarter: 2006Q3

REPORT INFORMATION
  Report Type: 
  Country: None (occurrence: None)
  Receive Date: 20060807
  Receipt Date: 20060724
  Transmission Date: 20061208
  Serious: Yes (Other)
  Sender: FDA-Public Use
  Company Number: US200607004426

PATIENT
  Age: 83 Year
  Sex: Female

DRUGS (1)
  1. HUMATROPE [Suspect]
     Dosage: 12 MG, UNKNOWN, UNK
     Route: 065
     Dates: start: 20040101

REACTIONS (2)
  - LUNG NEOPLASM MALIGNANT [None]
  - PHARMACEUTICAL PRODUCT COMPLAINT [None]
